FAERS Safety Report 15360268 (Version 1)
Quarter: 2018Q3

REPORT INFORMATION
  Report Type: Report from Study
  Country: US (occurrence: US)
  Receive Date: 20180907
  Receipt Date: 20180907
  Transmission Date: 20181010
  Serious: Yes (Other)
  Sender: FDA-Public Use
  Company Number: US-AMGEN-USASL2018103243

PATIENT
  Age: 74 Year
  Sex: Female

DRUGS (1)
  1. REPATHA [Suspect]
     Active Substance: EVOLOCUMAB
     Indication: HYPERCHOLESTEROLAEMIA
     Dosage: 140 MG, Q2WK
     Route: 058
     Dates: start: 20180514

REACTIONS (7)
  - Kidney infection [Unknown]
  - Neck pain [Unknown]
  - Rhinorrhoea [Unknown]
  - Arthropod sting [Unknown]
  - Oropharyngeal pain [Recovered/Resolved]
  - Cough [Unknown]
  - Hot flush [Unknown]

NARRATIVE: CASE EVENT DATE: 2018
